FAERS Safety Report 6375655-5 (Version None)
Quarter: 2009Q3

REPORT INFORMATION
  Report Type: 
  Country: None (occurrence: None)
  Receive Date: 20090924
  Receipt Date: 20090916
  Transmission Date: 20100115
  Serious: Yes (Death)
  Sender: FDA-Public Use
  Company Number: US-BAXTER-2009BH010959

PATIENT
  Age: 49 Year
  Sex: Male

DRUGS (7)
  1. ATIVAN [Suspect]
     Indication: SEDATION
     Route: 042
     Dates: start: 20090625, end: 20090625
  2. ATIVAN [Suspect]
     Route: 042
     Dates: start: 20090625, end: 20090625
  3. PROPOFOL [Suspect]
     Indication: SEDATION
     Route: 041
     Dates: start: 20090625, end: 20090625
  4. DIAZEPAM [Suspect]
     Indication: SEDATION
     Route: 048
     Dates: start: 20090625, end: 20090625
  5. MIDAZOLAM HCL [Suspect]
     Indication: DRUG USE FOR UNKNOWN INDICATION
     Route: 042
     Dates: start: 20090625, end: 20090625
  6. MIDAZOLAM HCL [Suspect]
     Route: 042
     Dates: start: 20090625, end: 20090625
  7. LIDOCAINE HYDROCHLORIDE [Suspect]
     Indication: SEDATION
     Route: 041
     Dates: start: 20090625, end: 20090625

REACTIONS (1)
  - DRUG TOXICITY [None]
